FAERS Safety Report 4705551-8 (Version None)
Quarter: 2005Q2

REPORT INFORMATION
  Report Type: 
  Country: None (occurrence: None)
  Receive Date: 20050629
  Receipt Date: 20050128
  Transmission Date: 20051028
  Serious: Yes (Death, Life-Threatening, Disabling, Other)
  Sender: FDA-Public Use
  Company Number: 200510931GDDC

PATIENT
  Age: 57 Year
  Sex: Male
  Weight: 62 kg

DRUGS (10)
  1. HEPARIN SODIUM [Suspect]
     Indication: MYOCARDIAL INFARCTION
     Dosage: ONCE IVB
     Route: 040
     Dates: start: 20050117, end: 20050117
  2. HEPARIN [Suspect]
     Indication: MYOCARDIAL INFARCTION
     Dosage: ONCE IVB
     Route: 040
     Dates: start: 20050117, end: 20050117
  3. HEPARIN [Suspect]
     Indication: MYOCARDIAL INFARCTION
     Dosage: SC
     Route: 058
     Dates: start: 20050117, end: 20050117
  4. HEPARIN SODIUM [Suspect]
     Indication: MYOCARDIAL INFARCTION
     Dosage: CONT IVF
     Route: 042
     Dates: start: 20050117, end: 20050117
  5. ASPIRIN [Suspect]
     Indication: MYOCARDIAL INFARCTION
     Dosage: 150 MG/DAY PO
     Route: 048
     Dates: start: 20050117, end: 20050117
  6. TENECTEPLASE [Suspect]
     Indication: MYOCARDIAL INFARCTION
     Dosage: 35 MG IV
     Route: 042
     Dates: start: 20050117, end: 20050117
  7. SORTIS [Concomitant]
  8. TRINITROSAN [Concomitant]
  9. PLAVIX [Concomitant]
  10. BETALOC [Concomitant]

REACTIONS (3)
  - CARDIAC ARREST [None]
  - CEREBROVASCULAR ACCIDENT [None]
  - COMA [None]
